FAERS Safety Report 16711169 (Version 1)
Quarter: 2019Q3

REPORT INFORMATION
  Report Type: Spontaneous
  Country: US (occurrence: US)
  Receive Date: 20190702
  Receipt Date: 20190702
  Transmission Date: 20191004
  Serious: No
  Sender: FDA-Public Use
  Company Number: None

PATIENT
  Sex: Male

DRUGS (1)
  1. BOTOX [Suspect]
     Active Substance: ONABOTULINUMTOXINA
     Indication: BLEPHAROSPASM
     Dosage: ?          OTHER DOSE:100 UNITS;OTHER FREQUENCY:EVERY 90 DAYS;?
     Route: 030
     Dates: start: 20190327

REACTIONS (2)
  - Eye pain [None]
  - Dry eye [None]
